FAERS Safety Report 6609171-X (Version None)
Quarter: 2010Q1

REPORT INFORMATION
  Report Type: 
  Country: None (occurrence: None)
  Receive Date: 20100224
  Receipt Date: 20100209
  Transmission Date: 20100710
  Serious: Yes (Other)
  Sender: FDA-Public Use
  Company Number: SPV1-2010-00236

PATIENT
  Age: 12 Year
  Sex: Male
  Weight: 39.8 kg

DRUGS (3)
  1. GUANFACINE HYDROCHLORIDE [Suspect]
     Indication: ATTENTION DEFICIT/HYPERACTIVITY DISORDER
     Dates: start: 20100114, end: 20100101
  2. GUANFACINE HYDROCHLORIDE [Suspect]
     Indication: ATTENTION DEFICIT/HYPERACTIVITY DISORDER
     Dates: start: 20100202, end: 20100211
  3. GUANFACINE HYDROCHLORIDE [Suspect]
     Indication: ATTENTION DEFICIT/HYPERACTIVITY DISORDER
     Dates: start: 20100212

REACTIONS (7)
  - ABDOMINAL PAIN [None]
  - BLOOD PRESSURE DIASTOLIC DECREASED [None]
  - CONSTIPATION [None]
  - HEART RATE DECREASED [None]
  - PAIN [None]
  - SEDATION [None]
  - SYNCOPE [None]
